FAERS Safety Report 17219294 (Version 8)
Quarter: 2020Q3

REPORT INFORMATION
  Report Type: Report from Study
  Country: BE (occurrence: BE)
  Receive Date: 20191231
  Receipt Date: 20200809
  Transmission Date: 20201102
  Serious: Yes (Death, Life-Threatening, Other)
  Sender: FDA-Public Use
  Company Number: NL-AMGEN-NLDCT2019216671

PATIENT
  Age: 67 Year
  Sex: Male

DRUGS (12)
  1. BLINATUMOMAB [Suspect]
     Active Substance: BLINATUMOMAB
     Indication: ACUTE LYMPHOCYTIC LEUKAEMIA
     Dosage: 9 MICROGRAM
     Route: 065
     Dates: start: 20191217, end: 20191224
  2. PANTOMED [DEXPANTHENOL] [Concomitant]
  3. EBASTINE [Concomitant]
     Active Substance: EBASTINE
  4. OLMESARTAN [Concomitant]
     Active Substance: OLMESARTAN
  5. MERONEM [Concomitant]
     Active Substance: MEROPENEM
  6. LORMETAZEPAM [Concomitant]
     Active Substance: LORMETAZEPAM
  7. PREDNISOLONE. [Suspect]
     Active Substance: PREDNISOLONE
     Indication: ACUTE LYMPHOCYTIC LEUKAEMIA
     Dosage: 64 MILLIGRAM
     Route: 048
     Dates: start: 20191212
  8. BIFITERAL [Concomitant]
     Active Substance: LACTULOSE
  9. EUSAPRIM [Concomitant]
     Active Substance: SULFAMETHOXAZOLE\TRIMETHOPRIM
  10. ZOVIRAX [ACICLOVIR SODIUM] [Concomitant]
  11. DIFLUCAN [Concomitant]
     Active Substance: FLUCONAZOLE
  12. FASTURTEC [Concomitant]
     Active Substance: RASBURICASE

REACTIONS (1)
  - Hepatotoxicity [Fatal]

NARRATIVE: CASE EVENT DATE: 20191227
